FAERS Safety Report 9960219 (Version 1)
Quarter: 2014Q1

REPORT INFORMATION
  Report Type: Spontaneous
  Country: US (occurrence: None)
  Receive Date: 20140228
  Receipt Date: 20140228
  Transmission Date: 20141002
  Serious: Yes (Other)
  Sender: FDA-Public Use
  Company Number: 2014P1001644

PATIENT
  Age: 32 Year
  Sex: Female

DRUGS (1)
  1. HYDROCHLOROQUINE [Suspect]

REACTIONS (9)
  - Dyspnoea [None]
  - Dyspnoea exertional [None]
  - Orthopnoea [None]
  - Local swelling [None]
  - Arthralgia [None]
  - Blood creatinine [None]
  - Anaemia [None]
  - Cardiomyopathy [None]
  - Blood pressure systolic increased [None]
